FAERS Safety Report 5570533-3 (Version None)
Quarter: 2007Q4

REPORT INFORMATION
  Report Type: 
  Country: None (occurrence: None)
  Receive Date: 20071221
  Receipt Date: 20071211
  Transmission Date: 20080405
  Serious: Yes (Death, Hospitalization, Other)
  Sender: FDA-Public Use
  Company Number: US-BAYER-200716135NA

PATIENT
  Age: 51 Year
  Sex: Female

DRUGS (5)
  1. MAGNEVIST [Suspect]
     Indication: NUCLEAR MAGNETIC RESONANCE IMAGING BRAIN
     Route: 042
     Dates: start: 20061024, end: 20061024
  2. MAGNEVIST [Suspect]
     Route: 042
     Dates: start: 20061010, end: 20061010
  3. OMNISCAN [Suspect]
     Indication: NUCLEAR MAGNETIC RESONANCE IMAGING BRAIN
     Route: 042
     Dates: start: 20051220, end: 20051220
  4. OMNISCAN [Suspect]
     Route: 042
     Dates: start: 20051119, end: 20051119
  5. OMNISCAN [Suspect]
     Route: 042
     Dates: start: 20050603, end: 20050603

REACTIONS (10)
  - ATRIAL FIBRILLATION [None]
  - DEATH [None]
  - HYPERTONIA [None]
  - JOINT RANGE OF MOTION DECREASED [None]
  - MITRAL VALVE DISEASE [None]
  - MUSCULAR WEAKNESS [None]
  - PAIN [None]
  - RESPIRATORY FAILURE [None]
  - SKIN HYPERTROPHY [None]
  - VENTRICULAR TACHYCARDIA [None]
